FAERS Safety Report 5339372-2 (Version None)
Quarter: 2007Q2

REPORT INFORMATION
  Report Type: 
  Country: None (occurrence: None)
  Receive Date: 20070322
  Receipt Date: 20060824
  Transmission Date: 20071010
  Serious: Yes (Other)
  Sender: FDA-Public Use
  Company Number: 200613598BCC

PATIENT
  Age: 60 Year
  Sex: Female

DRUGS (4)
  1. ALEVE (NAPROZEN SODIUM) [Suspect]
     Dosage: ORAL
     Route: 048
  2. ACETAMINOPHEN [Suspect]
     Indication: DRUG USE FOR UNKNOWN INDICATION
  3. IBUPROFEN [Suspect]
     Indication: DRUG USE FOR UNKNOWN INDICATION
  4. UNSPECIFIED PAIN MEDICATION (ANALGESICS) [Suspect]
     Indication: PAIN

REACTIONS (1)
  - GASTROINTESTINAL HAEMORRHAGE [None]
